FAERS Safety Report 20393033 (Version 2)
Quarter: 2022Q1

REPORT INFORMATION
  Report Type: Report from Study
  Country: FR (occurrence: FR)
  Receive Date: 20220128
  Receipt Date: 20220208
  Transmission Date: 20220424
  Serious: Yes (Hospitalization)
  Sender: FDA-Public Use
  Company Number: FR-BRISTOL-MYERS SQUIBB COMPANY-BMS-2022-010110

PATIENT
  Age: 77 Year
  Sex: Male
  Weight: 76 kg

DRUGS (3)
  1. APIXABAN [Suspect]
     Active Substance: APIXABAN
     Indication: Embolism venous
     Dosage: 5 MG TWICE A DAY OR 2.5 MG TWICE A DAY ACCORDING TO THE RANDOMIZATION GROUP
     Route: 048
     Dates: start: 20211013, end: 20211225
  2. APIXABAN [Suspect]
     Active Substance: APIXABAN
     Dosage: 5 MG TWICE A DAY OR 2.5 MG TWICE A DAY ACCORDING TO THE RANDOMIZATION GROUP
     Route: 048
     Dates: start: 20211228
  3. LEVOFLOXACIN [Concomitant]
     Active Substance: LEVOFLOXACIN
     Indication: Thrombosis prophylaxis
     Dosage: 4000 INTERNATIONAL UNIT
     Route: 030
     Dates: start: 20211225

REACTIONS (1)
  - COVID-19 [Not Recovered/Not Resolved]

NARRATIVE: CASE EVENT DATE: 20211225
